FAERS Safety Report 6012478-0 (Version None)
Quarter: 2008Q4

REPORT INFORMATION
  Report Type: 
  Country: None (occurrence: None)
  Receive Date: 20081218
  Receipt Date: 20081210
  Transmission Date: 20090506
  Serious: Yes (Other)
  Sender: FDA-Public Use
  Company Number: US-GENENTECH-272648

PATIENT
  Sex: Male
  Weight: 68.027 kg

DRUGS (1)
  1. AVASTIN [Suspect]
     Indication: COLORECTAL CANCER
     Dosage: 335 MG, Q2W
     Route: 042
     Dates: start: 20070828

REACTIONS (1)
  - CATHETER SITE EROSION [None]
